FAERS Safety Report 15397370 (Version 1)
Quarter: 2018Q3

REPORT INFORMATION
  Report Type: Spontaneous
  Country: FR (occurrence: FR)
  Receive Date: 20180918
  Receipt Date: 20180918
  Transmission Date: 20181010
  Serious: Yes (Hospitalization)
  Sender: FDA-Public Use
  Company Number: FR-PFIZER INC-2018372454

PATIENT
  Age: 58 Year
  Sex: Female
  Weight: 44.5 kg

DRUGS (10)
  1. MIANSERINE ARROW [Suspect]
     Active Substance: MIANSERIN HYDROCHLORIDE
     Indication: DEPRESSION
     Dosage: 1 DF, 1X/DAY
     Route: 048
     Dates: start: 20180808, end: 20180816
  2. AMBISOME [Suspect]
     Active Substance: AMPHOTERICIN B
     Indication: LUNG DISORDER
     Dosage: 180 MG, UNK
     Route: 041
     Dates: start: 20180727, end: 20180817
  3. OROZAMUDOL [Suspect]
     Active Substance: TRAMADOL
     Indication: HEADACHE
     Dosage: 100 MG, SINGLE
     Route: 048
     Dates: start: 20180815, end: 20180815
  4. ARACYTINE [Suspect]
     Active Substance: CYTARABINE
     Dosage: 200 MG/M2, UNK
     Route: 041
     Dates: start: 20180319, end: 20180326
  5. ARACYTINE [Suspect]
     Active Substance: CYTARABINE
     Dosage: 3000 MG/M2, UNK
     Route: 041
     Dates: end: 20180815
  6. RYDAPT [Suspect]
     Active Substance: MIDOSTAURIN
     Indication: ACUTE MYELOID LEUKAEMIA
     Dosage: 50 MG, DAILY (50 MG/DAY FROM DAY 8 TO DAY 21)
     Route: 048
     Dates: start: 20180327, end: 20180816
  7. NEBIVOLOL SANDOZ [Concomitant]
     Active Substance: NEBIVOLOL
     Dosage: UNK
  8. PANTOPRAZOLE MYLAN [Concomitant]
     Active Substance: PANTOPRAZOLE SODIUM
     Dosage: UNK
  9. PARACETAMOL [Concomitant]
     Active Substance: ACETAMINOPHEN
     Dosage: UNK
  10. MERONEM [Suspect]
     Active Substance: MEROPENEM
     Indication: LUNG DISORDER
     Dosage: 6 G, 1X/DAY
     Route: 041
     Dates: start: 20180726

REACTIONS (3)
  - Dysarthria [Recovering/Resolving]
  - Cerebellar syndrome [Recovering/Resolving]
  - Vertigo [Recovering/Resolving]

NARRATIVE: CASE EVENT DATE: 20180816
